FAERS Safety Report 7283477-6 (Version None)
Quarter: 2011Q1

REPORT INFORMATION
  Report Type: 
  Country: None (occurrence: None)
  Receive Date: 20110209
  Receipt Date: 20110128
  Transmission Date: 20110831
  Serious: Yes (Other)
  Sender: FDA-Public Use
  Company Number: PHHY2011US07164

PATIENT
  Sex: Female

DRUGS (4)
  1. CALCIUM [Concomitant]
  2. MULTI-VITAMINS [Concomitant]
  3. RECLAST [Suspect]
     Dosage: 5 MG/ 100 ML, YEARLY
  4. CRESTOR [Concomitant]

REACTIONS (3)
  - BLOOD URINE PRESENT [None]
  - BACK PAIN [None]
  - BLADDER NEOPLASM [None]
